FAERS Safety Report 16237206 (Version 1)
Quarter: 2019Q2

REPORT INFORMATION
  Report Type: Spontaneous
  Country: PL (occurrence: PL)
  Receive Date: 20190425
  Receipt Date: 20190425
  Transmission Date: 20190711
  Serious: Yes (Other)
  Sender: FDA-Public Use
  Company Number: PL-ACCORD-124019

PATIENT
  Age: 10 Year
  Sex: Female
  Weight: 26 kg

DRUGS (3)
  1. ZYRTEC [Concomitant]
     Active Substance: CETIRIZINE HYDROCHLORIDE
  2. METHOTREXATE. [Suspect]
     Active Substance: METHOTREXATE
     Indication: NEOPLASM MALIGNANT
     Route: 041
     Dates: start: 20141030
  3. ESSENTIALE [Concomitant]
     Indication: LIVER FUNCTION TEST INCREASED
     Dosage: DOSE: 1 TABLET

REACTIONS (4)
  - Dyspnoea [Recovered/Resolved]
  - Face oedema [Recovered/Resolved]
  - Lung disorder [Recovered/Resolved]
  - Abdominal pain [Recovered/Resolved]

NARRATIVE: CASE EVENT DATE: 20141030
